FAERS Safety Report 13060049 (Version 2)
Quarter: 2017Q1

REPORT INFORMATION
  Report Type: Spontaneous
  Country: DK (occurrence: DK)
  Receive Date: 20161223
  Receipt Date: 20170329
  Transmission Date: 20170428
  Serious: Yes (Other)
  Sender: FDA-Public Use
  Company Number: PHHY2016DK172715

PATIENT
  Age: 63 Year
  Sex: Male
  Weight: 84 kg

DRUGS (2)
  1. ENACODAN [Concomitant]
     Indication: HYPERTENSION
     Route: 065
     Dates: start: 2008
  2. METHOTREXATE (METHOTREXATE SODIUM) [Suspect]
     Active Substance: METHOTREXATE SODIUM
     Indication: PSORIASIS
     Dosage: 2.5 MG, THREE TABLETS WEEKLY REDUCED TO TWO TABLETS WEEKLY
     Route: 048
     Dates: start: 20150701, end: 20161115

REACTIONS (11)
  - Jaundice [Recovering/Resolving]
  - Dizziness [Recovered/Resolved]
  - Angina pectoris [Recovered/Resolved]
  - Micturition disorder [Recovered/Resolved]
  - Fatigue [Recovered/Resolved]
  - Pruritus [Recovered/Resolved]
  - Hepatic cirrhosis [Not Recovered/Not Resolved]
  - Chromaturia [Recovered/Resolved]
  - Ataxia [Recovered/Resolved]
  - Decreased appetite [Recovered/Resolved]
  - Dyspnoea [Recovered/Resolved]

NARRATIVE: CASE EVENT DATE: 201607
